FAERS Safety Report 6722682-1 (Version None)
Quarter: 2010Q2

REPORT INFORMATION
  Report Type: 
  Country: None (occurrence: None)
  Receive Date: 20100512
  Receipt Date: 20100429
  Transmission Date: 20101027
  Serious: Yes (Other)
  Sender: FDA-Public Use
  Company Number: DE-PFIZER INC-2010026186

PATIENT
  Age: 46 Year
  Sex: Male

DRUGS (1)
  1. ATARAX [Suspect]
     Dosage: 2000 MG, 80 TABLETS OF 25 MG TAKEN IN A SINGLE DOSE
     Route: 048
     Dates: start: 20100220, end: 20100220

REACTIONS (6)
  - CARDIOVASCULAR DISORDER [None]
  - CONVULSION [None]
  - INTENTIONAL OVERDOSE [None]
  - SOPOR [None]
  - SUICIDE ATTEMPT [None]
  - TACHYCARDIA [None]
